FAERS Safety Report 4379406-5 (Version None)
Quarter: 2004Q2

REPORT INFORMATION
  Report Type: 
  Country: None (occurrence: None)
  Receive Date: 20040614
  Receipt Date: 20040526
  Transmission Date: 20050107
  Serious: Yes (Hospitalization, Other)
  Sender: FDA-Public Use
  Company Number: DE-JNJFOC-20040601609

PATIENT
  Age: 75 Year
  Sex: Female

DRUGS (10)
  1. REOPRO (ABCIXIMAB) INJECTION [Suspect]
     Indication: ACUTE MYOCARDIAL INFARCTION
     Dosage: SEE IMAGE
  2. RETAVASE (RETEPLASE) LYOPHILIZED POWDER [Suspect]
     Indication: ACUTE MYOCARDIAL INFARCTION
     Dosage: 5 IU, 2 IN 1 TOTAL
  3. ASPIRIN [Concomitant]
  4. HEPARIN [Concomitant]
  5. DIURETICS (DIURETICS) [Concomitant]
  6. AMARYL [Concomitant]
  7. DIGIMERCK MINOR (DIGITOXIN) [Concomitant]
  8. SOTALOL HYDROCHLORIDE [Concomitant]
  9. ACE INHIBITOR (ACE INHIBITOR NOS) [Concomitant]
  10. CALCIUM ANTAGONIST (CALCIUM CHANNEL BLOCKERS) [Concomitant]

REACTIONS (12)
  - BODY TEMPERATURE INCREASED [None]
  - BRADYARRHYTHMIA [None]
  - CATHETER RELATED INFECTION [None]
  - DRUG INTERACTION [None]
  - FLUID RETENTION [None]
  - HAEMATOMA [None]
  - HAEMOGLOBIN DECREASED [None]
  - HAEMORRHAGE [None]
  - HYPOTENSION [None]
  - PLEURAL EFFUSION [None]
  - PULMONARY CONGESTION [None]
  - URINARY TRACT INFECTION [None]
